FAERS Safety Report 18252201 (Version 2)
Quarter: 2022Q3

REPORT INFORMATION
  Report Type: Spontaneous
  Country: US (occurrence: None)
  Receive Date: 20200910
  Receipt Date: 20220907
  Transmission Date: 20221026
  Serious: No
  Sender: FDA-Public Use
  Company Number: US-FARMAPROD-202005-0680

PATIENT
  Sex: Female
  Weight: 82.628 kg

DRUGS (23)
  1. OXERVATE [Suspect]
     Active Substance: CENEGERMIN-BKBJ
     Indication: Neurotrophic keratopathy
     Route: 047
     Dates: start: 20200330
  2. CALCIUM [Concomitant]
     Active Substance: CALCIUM
  3. VITAMIN D3 [Concomitant]
     Active Substance: CHOLECALCIFEROL
  4. BIOTIN [Concomitant]
     Active Substance: BIOTIN
  5. MAGNESIUM [Concomitant]
     Active Substance: MAGNESIUM
  6. ASPIRIN [Concomitant]
     Active Substance: ASPIRIN
  7. PROGRAF [Concomitant]
     Active Substance: TACROLIMUS
  8. PROGRAF [Concomitant]
     Active Substance: TACROLIMUS
  9. PREDNISONE [Concomitant]
     Active Substance: PREDNISONE
  10. MYFORTIC [Concomitant]
     Active Substance: MYCOPHENOLATE SODIUM
  11. ANASTROZOLE [Concomitant]
     Active Substance: ANASTROZOLE
  12. LOSARTAN POTASSIUM [Concomitant]
     Active Substance: LOSARTAN POTASSIUM
  13. SYNTHROID [Concomitant]
     Active Substance: LEVOTHYROXINE SODIUM
  14. TRESIBA [Concomitant]
     Active Substance: INSULIN DEGLUDEC
  15. LATANOPROST [Concomitant]
     Active Substance: LATANOPROST
  16. PREDNISOLONE-NEPAFENAC [Concomitant]
  17. OFLOXACIN [Concomitant]
     Active Substance: OFLOXACIN
  18. COREG [Concomitant]
     Active Substance: CARVEDILOL
  19. ATORVASTATIN CALCIUM [Concomitant]
     Active Substance: ATORVASTATIN CALCIUM
  20. AMLODIPINE BESYLATE [Concomitant]
     Active Substance: AMLODIPINE BESYLATE
  21. VITAMIN B [Concomitant]
     Active Substance: VITAMIN B
  22. VITAMIN E [Concomitant]
     Active Substance: .ALPHA.-TOCOPHEROL
  23. FIASP [Concomitant]
     Active Substance: INSULIN ASPART

REACTIONS (4)
  - Eye pain [Unknown]
  - Vision blurred [Not Recovered/Not Resolved]
  - Product dose omission issue [Unknown]
  - Product storage error [Unknown]
